FAERS Safety Report 5906955-8 (Version None)
Quarter: 2008Q4

REPORT INFORMATION
  Report Type: 
  Country: None (occurrence: None)
  Receive Date: 20081003
  Receipt Date: 20080925
  Transmission Date: 20090506
  Serious: Yes (Disabling, Other)
  Sender: FDA-Public Use
  Company Number: MX-JNJFOC-20080906399

PATIENT
  Sex: Male

DRUGS (1)
  1. ELEQUINE [Suspect]
     Indication: TYPHOID FEVER
     Route: 065

REACTIONS (3)
  - JOINT DISLOCATION [None]
  - LIGAMENT RUPTURE [None]
  - TENDONITIS [None]
